FAERS Safety Report 7161259-3 (Version None)
Quarter: 2010Q4

REPORT INFORMATION
  Report Type: 
  Country: None (occurrence: None)
  Receive Date: 20101210
  Receipt Date: 20101210
  Transmission Date: 20110411
  Serious: Yes (Other)
  Sender: FDA-Public Use
  Company Number: None

PATIENT
  Age: 49 Year
  Sex: Female
  Weight: 78.0187 kg

DRUGS (1)
  1. METHOTREXATE [Suspect]
     Indication: SARCOIDOSIS
     Dosage: 6 TABLETS ONCE A WEEK
     Dates: start: 20101117, end: 20101124

REACTIONS (6)
  - BONE PAIN [None]
  - DYSPEPSIA [None]
  - NAUSEA [None]
  - POISONING [None]
  - PRODUCT SUBSTITUTION ISSUE [None]
  - UNEVALUABLE EVENT [None]
